FAERS Safety Report 24339920 (Version 8)
Quarter: 2024Q4

REPORT INFORMATION
  Report Type: Spontaneous
  Country: US (occurrence: US)
  Receive Date: 20240919
  Receipt Date: 20241018
  Transmission Date: 20250115
  Serious: Yes (Other)
  Sender: NOVARTIS
  Company Number: US-002147023-NVSC2024US186919

PATIENT

DRUGS (5)
  1. ENTRESTO [Suspect]
     Active Substance: SACUBITRIL\VALSARTAN
     Indication: Product used for unknown indication
     Dosage: UNK, QD
     Route: 065
  2. COSENTYX [Suspect]
     Active Substance: SECUKINUMAB
     Indication: Product used for unknown indication
     Dosage: UNK
     Route: 065
  3. COSENTYX [Suspect]
     Active Substance: SECUKINUMAB
     Dosage: 300 MG, QW (ABOUT 2.5 WEEKS)
     Route: 065
  4. HUMIRA [Suspect]
     Active Substance: ADALIMUMAB
     Indication: Product used for unknown indication
     Dosage: UNK
     Route: 065
  5. FLUDROCORTISONE [Concomitant]
     Active Substance: FLUDROCORTISONE
     Indication: Product used for unknown indication
     Dosage: UNK
     Route: 065

REACTIONS (19)
  - Syncope [Unknown]
  - Enthesopathy [Unknown]
  - Pain [Unknown]
  - Ill-defined disorder [Unknown]
  - Fatigue [Unknown]
  - Condition aggravated [Unknown]
  - Muscle spasms [Unknown]
  - Tendonitis [Unknown]
  - Diarrhoea [Unknown]
  - COVID-19 [Unknown]
  - Rhinorrhoea [Unknown]
  - Injection site pain [Unknown]
  - Skin swelling [Unknown]
  - Paraesthesia [Unknown]
  - Paraesthesia oral [Unknown]
  - Asthenia [Unknown]
  - Movement disorder [Unknown]
  - Dizziness [Unknown]
  - Inappropriate schedule of product administration [Unknown]
